FAERS Safety Report 7678027-6 (Version None)
Quarter: 2011Q3

REPORT INFORMATION
  Report Type: 
  Country: None (occurrence: None)
  Receive Date: 20110811
  Receipt Date: 20110802
  Transmission Date: 20111222
  Serious: Yes (Death, Hospitalization)
  Sender: FDA-Public Use
  Company Number: FR-GLAXOSMITHKLINE-B0734414A

PATIENT
  Sex: Male
  Weight: 65 kg

DRUGS (6)
  1. ZYPREXA [Concomitant]
     Dosage: 10MG PER DAY
     Route: 048
     Dates: start: 20060101
  2. ZOLPIDEM [Concomitant]
     Dosage: 10MG PER DAY
     Route: 048
  3. DEPAKOTE [Concomitant]
     Dosage: 250MG TWICE PER DAY
     Route: 048
     Dates: start: 20060101
  4. ARIXTRA [Suspect]
     Dosage: 7.5MG PER DAY
     Route: 058
     Dates: start: 20110607
  5. PREVISCAN [Suspect]
     Indication: CEREBRAL VENOUS THROMBOSIS
     Route: 048
  6. AMLODIPINE BESYLATE [Concomitant]
     Dosage: 5MG PER DAY
     Route: 048

REACTIONS (5)
  - PUPILS UNEQUAL [None]
  - SUBDURAL HAEMATOMA [None]
  - GRAND MAL CONVULSION [None]
  - MALAISE [None]
  - CONFUSIONAL STATE [None]
